FAERS Safety Report 5130896-X (Version None)
Quarter: 2006Q4

REPORT INFORMATION
  Report Type: 
  Country: None (occurrence: None)
  Receive Date: 20061013
  Receipt Date: 20060928
  Transmission Date: 20070319
  Serious: Yes (Hospitalization)
  Sender: FDA-Public Use
  Company Number: REM_00265_2006

PATIENT
  Age: 33 Year
  Sex: Female
  Weight: 94.5 kg

DRUGS (4)
  1. REMODULIN [Suspect]
     Indication: PULMONARY HYPERTENSION
     Dosage: 66 NG/KG/MIN CONTINUOUS IV
     Route: 042
     Dates: start: 20060425
  2. WARFARIN SODIUM [Concomitant]
  3. DILTIAZEM HCL [Concomitant]
  4. IMODIUM [Concomitant]

REACTIONS (8)
  - CATHETER RELATED COMPLICATION [None]
  - CATHETER SITE ERYTHEMA [None]
  - CATHETER SITE OEDEMA [None]
  - CATHETER SITE PAIN [None]
  - CULTURE WOUND POSITIVE [None]
  - FLUCTUANCE [None]
  - PSEUDOMONAS INFECTION [None]
  - PURULENT DISCHARGE [None]
